FAERS Safety Report 8853670 (Version 3)
Quarter: 2013Q4

REPORT INFORMATION
  Report Type: Spontaneous
  Country: US (occurrence: None)
  Receive Date: 20120426
  Receipt Date: 20131226
  Transmission Date: 20140711
  Serious: Yes (Other)
  Sender: FDA-Public Use
  Company Number: PHEH2012US004740

PATIENT
  Age: 46 Year
  Sex: Female

DRUGS (2)
  1. GILENYA [Suspect]
     Indication: MULTIPLE SCLEROSIS
     Route: 048
     Dates: start: 20120130
  2. HERBAL PREPARATION [Concomitant]

REACTIONS (4)
  - Constipation [None]
  - Oral discomfort [None]
  - Decreased appetite [None]
  - Dizziness postural [None]
